FAERS Safety Report 9055486 (Version 1)
Quarter: 2013Q1

REPORT INFORMATION
  Report Type: Spontaneous
  Country: PH (occurrence: PH)
  Receive Date: 20130206
  Receipt Date: 20130206
  Transmission Date: 20140127
  Serious: Yes (Hospitalization)
  Sender: FDA-Public Use
  Company Number: PH-ASTRAZENECA-2013SE08081

PATIENT
  Sex: Male

DRUGS (1)
  1. SYMBICORT TURBUHALER [Suspect]
     Indication: CHRONIC OBSTRUCTIVE PULMONARY DISEASE
     Dosage: 160/4.5 MCG, ONE INHALATION BID
     Route: 055
     Dates: start: 20110704, end: 20130111

REACTIONS (3)
  - Dyspnoea [Recovered/Resolved]
  - Haemoptysis [Recovered/Resolved]
  - Pyrexia [Recovered/Resolved]
